FAERS Safety Report 9504181 (Version 1)
Quarter: 2013Q1

REPORT INFORMATION
  Report Type: Spontaneous
  Country: US (occurrence: None)
  Receive Date: 20130225
  Receipt Date: 20130225
  Transmission Date: 20140127
  Serious: No
  Sender: FDA-Public Use
  Company Number: 365252

PATIENT
  Age: 61 Year
  Sex: Female

DRUGS (3)
  1. VICTOZA [Suspect]
     Indication: PRODUCT USED FOR UNKNOWN INDICATION
     Route: 058
  2. HUMALOG (INSULIN LISPRO) [Concomitant]
  3. LANTUS (INSULIN GLARGINE) [Concomitant]

REACTIONS (7)
  - Pain [None]
  - Influenza like illness [None]
  - Aphagia [None]
  - Flatulence [None]
  - Abdominal distension [None]
  - Nausea [None]
  - Diarrhoea [None]
